FAERS Safety Report 5416437-8 (Version None)
Quarter: 2007Q3

REPORT INFORMATION
  Report Type: 
  Country: None (occurrence: None)
  Receive Date: 20070814
  Receipt Date: 20070731
  Transmission Date: 20080115
  Serious: Yes (Life-Threatening, Hospitalization)
  Sender: FDA-Public Use
  Company Number: SPV1-2007-03749

PATIENT
  Age: 67 Year
  Sex: Male

DRUGS (3)
  1. PENTASA [Suspect]
     Indication: COLITIS ULCERATIVE
     Dosage: 2 G DAILY, ORAL
     Route: 048
     Dates: start: 20060901, end: 20070407
  2. ACENOCOUMAROL (ACENOCOUMAROL) [Concomitant]
  3. METOPROLOL TARTRATE [Concomitant]

REACTIONS (4)
  - CELLULITIS [None]
  - LEUKOPENIA [None]
  - PERIANAL ABSCESS [None]
  - SEPSIS [None]
